FAERS Safety Report 26088851 (Version 1)
Quarter: 2025Q4

REPORT INFORMATION
  Report Type: Spontaneous
  Country: JP (occurrence: JP)
  Receive Date: 20251125
  Receipt Date: 20251125
  Transmission Date: 20260117
  Serious: Yes (Other)
  Sender: MERCK SHARP & DOHME LLC
  Company Number: JP-BAXTER-2013BAX014718

PATIENT
  Age: 65 Year
  Weight: 54.5 kg

DRUGS (12)
  1. ROCURONIUM BROMIDE [Suspect]
     Active Substance: ROCURONIUM BROMIDE
     Indication: Muscle relaxant therapy
     Route: 042
     Dates: start: 20121226, end: 20121226
  2. NEOSYNESIN [Suspect]
     Active Substance: PHENYLEPHRINE HYDROCHLORIDE
     Indication: Analgesic therapy
     Dosage: 0.75
     Route: 042
     Dates: start: 20121226, end: 20121226
  3. BRIDION [Suspect]
     Active Substance: SUGAMMADEX SODIUM
     Indication: Anaesthesia reversal
     Route: 042
     Dates: start: 20121226, end: 20121226
  4. SUPRANE [Suspect]
     Active Substance: DESFLURANE
     Indication: Sedative therapy
     Dosage: PATIENT ROA: ENDOTRACHEOPULMONARY USE
     Dates: start: 20121226, end: 20121226
  5. PROPOFOL [Suspect]
     Active Substance: PROPOFOL
     Indication: Sedative therapy
     Route: 042
     Dates: start: 20121226, end: 20121226
  6. FENTANYL CITRATE [Suspect]
     Active Substance: FENTANYL CITRATE
     Indication: Analgesic therapy
     Route: 042
     Dates: start: 20121226, end: 20121226
  7. ULTIVA [Suspect]
     Active Substance: REMIFENTANIL HYDROCHLORIDE
     Indication: Analgesic therapy
     Route: 042
     Dates: start: 20121226, end: 20121226
  8. MORPHINE HYDROCHLORIDE [Suspect]
     Active Substance: MORPHINE HYDROCHLORIDE
     Indication: Analgesic therapy
     Route: 042
     Dates: start: 20121226, end: 20121226
  9. FLURBIPROFEN AXETIL [Suspect]
     Active Substance: FLURBIPROFEN AXETIL
     Indication: Analgesic therapy
     Route: 042
     Dates: start: 20121226, end: 20121226
  10. EPHEDRINE HYDROCHLORIDE [Suspect]
     Active Substance: EPHEDRINE HYDROCHLORIDE
     Indication: Blood pressure management
     Route: 042
     Dates: start: 20121226, end: 20121226
  11. ANAPEINE [Suspect]
     Active Substance: ROPIVACAINE HYDROCHLORIDE
     Indication: Analgesic therapy
     Route: 008
     Dates: start: 20121226, end: 20121226
  12. ANAPEINE [Suspect]
     Active Substance: ROPIVACAINE HYDROCHLORIDE
     Indication: Analgesic therapy
     Dosage: 206 CONTINUOUS
     Route: 008
     Dates: start: 20121226

REACTIONS (3)
  - Oropharyngeal spasm [Recovered/Resolved]
  - Dyspnoea [Recovered/Resolved]
  - Airway complication of anaesthesia [Recovered/Resolved]

NARRATIVE: CASE EVENT DATE: 20121226
